FAERS Safety Report 14233525 (Version 1)
Quarter: 2017Q4

REPORT INFORMATION
  Report Type: Report from Study
  Country: DE (occurrence: DE)
  Receive Date: 20171128
  Receipt Date: 20171128
  Transmission Date: 20180321
  Serious: Yes (Other)
  Sender: FDA-Public Use
  Company Number: DE-TEVA-2017-DE-826424

PATIENT
  Age: 47 Year
  Sex: Female

DRUGS (2)
  1. COPAXONE [Suspect]
     Active Substance: GLATIRAMER ACETATE
     Indication: MULTIPLE SCLEROSIS
     Dates: start: 20170626
  2. GABAPENTIN. [Concomitant]
     Active Substance: GABAPENTIN
     Dosage: ONCE DAILY, UNKNOWN DOSE

REACTIONS (4)
  - Multiple sclerosis relapse [Not Recovered/Not Resolved]
  - Dizziness [Recovered/Resolved]
  - Gait disturbance [Recovered/Resolved]
  - Dysaesthesia [Not Recovered/Not Resolved]

NARRATIVE: CASE EVENT DATE: 201711
